FAERS Safety Report 4993978-9 (Version None)
Quarter: 2006Q2

REPORT INFORMATION
  Report Type: 
  Country: None (occurrence: None)
  Receive Date: 20060505
  Receipt Date: 20060426
  Transmission Date: 20061013
  Serious: Yes (Hospitalization)
  Sender: FDA-Public Use
  Company Number: FR-GLAXOSMITHKLINE-B0422166A

PATIENT
  Age: 44 Year
  Sex: Male
  Weight: 58 kg

DRUGS (8)
  1. AUGMENTIN '125' [Suspect]
     Dosage: 1G THREE TIMES PER DAY
     Route: 042
     Dates: start: 20060217, end: 20060308
  2. BACTRIM DS [Suspect]
     Dosage: 1UNIT PER DAY
     Route: 048
     Dates: start: 20060303, end: 20060311
  3. OXACILLIN [Suspect]
     Dosage: 1G THREE TIMES PER DAY
     Route: 042
     Dates: start: 20060303, end: 20060308
  4. AZADOSE [Suspect]
     Dosage: 1UNIT TWO TIMES PER WEEK
     Route: 048
     Dates: start: 20060304, end: 20060311
  5. TRIFLUCAN [Suspect]
     Indication: ORAL CANDIDIASIS
     Dosage: 200MG PER DAY
     Route: 048
     Dates: start: 20060303, end: 20060309
  6. AUGMENTIN '125' [Concomitant]
     Dosage: 1G THREE TIMES PER DAY
     Route: 048
     Dates: start: 20060308, end: 20060310
  7. LOVENOX [Concomitant]
     Dosage: .4UNIT PER DAY
     Route: 065
     Dates: start: 20060213, end: 20060309
  8. NEXIUM [Concomitant]
     Dosage: 20MG PER DAY
     Route: 065
     Dates: start: 20060301, end: 20060306

REACTIONS (4)
  - ALANINE AMINOTRANSFERASE INCREASED [None]
  - ASPARTATE AMINOTRANSFERASE INCREASED [None]
  - GAMMA-GLUTAMYLTRANSFERASE INCREASED [None]
  - HEPATITIS [None]
